FAERS Safety Report 6788014-8 (Version None)
Quarter: 2010Q2

REPORT INFORMATION
  Report Type: 
  Country: None (occurrence: None)
  Receive Date: 20100623
  Receipt Date: 20071212
  Transmission Date: 20101027
  Serious: No
  Sender: FDA-Public Use
  Company Number: US-PFIZER INC-2007100618

PATIENT
  Sex: Female

DRUGS (1)
  1. NICOTROL [Suspect]
     Indication: SMOKING CESSATION THERAPY
     Dates: start: 20071101, end: 20071101

REACTIONS (4)
  - COUGH [None]
  - DRUG INEFFECTIVE [None]
  - LACRIMATION INCREASED [None]
  - ORAL DISCOMFORT [None]
